FAERS Safety Report 11154691 (Version 2)
Quarter: 2015Q3

REPORT INFORMATION
  Report Type: Spontaneous
  Country: US (occurrence: None)
  Receive Date: 20150529
  Receipt Date: 20150917
  Transmission Date: 20151125
  Serious: Yes (Hospitalization)
  Sender: FDA-Public Use
  Company Number: 1224850-2015-00023

PATIENT
  Age: 53 Year
  Sex: Male

DRUGS (14)
  1. VIMPAT [Concomitant]
     Active Substance: LACOSAMIDE
  2. OMEPRAZOLE. [Concomitant]
     Active Substance: OMEPRAZOLE
  3. NIZORAL [Concomitant]
     Active Substance: KETOCONAZOLE
  4. CALCITROL [Concomitant]
     Active Substance: CALCITRIOL
  5. CELEXA [Concomitant]
     Active Substance: CITALOPRAM HYDROBROMIDE
  6. SYNTHROID [Concomitant]
     Active Substance: LEVOTHYROXINE SODIUM
  7. METROGEL [Concomitant]
     Active Substance: METRONIDAZOLE
  8. DOXYCILIN [Concomitant]
  9. TEMAZEPAM. [Concomitant]
     Active Substance: TEMAZEPAM
  10. AFINITOR [Concomitant]
     Active Substance: EVEROLIMUS
  11. BENIZOL [Concomitant]
  12. TOPAMAX [Concomitant]
     Active Substance: TOPIRAMATE
  13. PHOSLO [Suspect]
     Active Substance: CALCIUM ACETATE
     Route: 048
  14. ZYPREXA [Concomitant]
     Active Substance: OLANZAPINE

REACTIONS (6)
  - Drug level decreased [None]
  - Abnormal behaviour [None]
  - Laceration [None]
  - Seizure [None]
  - Fall [None]
  - Confusional state [None]

NARRATIVE: CASE EVENT DATE: 20120127
